FAERS Safety Report 7790828-2 (Version None)
Quarter: 2011Q3

REPORT INFORMATION
  Report Type: 
  Country: None (occurrence: None)
  Receive Date: 20110930
  Receipt Date: 20110923
  Transmission Date: 20111222
  Serious: Yes (Other)
  Sender: FDA-Public Use
  Company Number: US-RB-027660-11

PATIENT
  Age: 50 Year
  Sex: Female

DRUGS (7)
  1. VALPROIC ACID [Concomitant]
     Indication: BIPOLAR DISORDER
     Dosage: 250 MG/5ML- 5 TSP EVERY NIGHT
     Route: 065
  2. PAXIL [Concomitant]
     Indication: DEPRESSION
     Route: 065
  3. NORVASC [Concomitant]
     Indication: HYPERTENSION
     Dosage: 1 TABLET/DAILY
     Route: 065
  4. SUBOXONE [Suspect]
     Indication: DRUG DEPENDENCE
     Dosage: SUBLINGUAL FILM
     Route: 060
     Dates: start: 20110513
  5. PAXIL [Concomitant]
     Indication: BIPOLAR DISORDER
     Route: 065
  6. CLONIDINE [Concomitant]
     Indication: HYPERTENSION
     Route: 065
  7. VALPROIC ACID [Concomitant]
     Indication: DEPRESSION
     Dosage: 250 MG/5ML- 5 TSP EVERY NIGHT
     Route: 065

REACTIONS (4)
  - URTICARIA [None]
  - INSOMNIA [None]
  - PRURITUS [None]
  - HALLUCINATION [None]
